FAERS Safety Report 8305111-6 (Version None)
Quarter: 2012Q2

REPORT INFORMATION
  Report Type: 
  Country: None (occurrence: None)
  Receive Date: 20120413
  Receipt Date: 20120330
  Transmission Date: 20120825
  Serious: Yes (Hospitalization, Other)
  Sender: FDA-Public Use
  Company Number: 2012PROUSA01194

PATIENT
  Age: 77 Year
  Sex: Male
  Weight: 117.9 kg

DRUGS (6)
  1. PROVENGE [Suspect]
  2. PROVENGE [Suspect]
     Indication: PROSTATE CANCER METASTATIC
     Dosage: 250 ML, SINGLE, INTRAVENOUS, 250 ML, SINGLE, INTRAVENOUS
     Route: 042
     Dates: start: 20120301, end: 20120301
  3. PROVENGE [Suspect]
     Indication: PROSTATE CANCER METASTATIC
     Dosage: 250 ML, SINGLE, INTRAVENOUS, 250 ML, SINGLE, INTRAVENOUS
     Route: 042
     Dates: start: 20120315, end: 20120315
  4. BENADRYL [Suspect]
  5. DEMEROL [Suspect]
  6. COUMADIN [Concomitant]

REACTIONS (3)
  - FALL [None]
  - INFUSION RELATED REACTION [None]
  - ASTHENIA [None]
